FAERS Safety Report 9393634 (Version 1)
Quarter: 2013Q3

REPORT INFORMATION
  Report Type: Spontaneous
  Country: JP (occurrence: JP)
  Receive Date: 20130710
  Receipt Date: 20130710
  Transmission Date: 20140515
  Serious: Yes (Other)
  Sender: FDA-Public Use
  Company Number: JP-GLAXOSMITHKLINE-B0896792A

PATIENT
  Age: 35 Year
  Sex: Female
  Weight: 70 kg

DRUGS (21)
  1. LANDSEN [Concomitant]
     Indication: ANXIETY
     Dosage: .5MG PER DAY
     Route: 048
     Dates: start: 20120601, end: 20121023
  2. SOLANAX [Concomitant]
     Indication: ANXIETY
     Route: 048
     Dates: start: 20120601, end: 20121023
  3. SEROQUEL [Concomitant]
     Indication: ANXIETY
     Route: 048
     Dates: start: 20120601, end: 20121023
  4. RISPERDAL [Concomitant]
     Indication: ANXIETY
     Dosage: .5MG PER DAY
     Route: 048
     Dates: start: 20120601, end: 20121023
  5. CHINESE MEDICINE [Concomitant]
     Indication: CONSTIPATION
     Route: 048
     Dates: start: 20120601, end: 20121023
  6. CHINESE MEDICINE [Concomitant]
     Indication: MOOD SWINGS
     Route: 048
     Dates: start: 20121024, end: 20121106
  7. PAXIL [Suspect]
     Indication: DEPRESSION
     Route: 048
     Dates: start: 20121121, end: 20121225
  8. PAXIL [Suspect]
     Indication: DEPRESSION
     Route: 048
     Dates: start: 20121226, end: 20130212
  9. PAXIL [Suspect]
     Indication: DEPRESSION
     Dosage: 12.5MG PER DAY
     Route: 048
     Dates: start: 20130213, end: 20130312
  10. PAXIL [Suspect]
     Indication: DEPRESSION
     Dosage: 12.5MG PER DAY
     Route: 048
     Dates: start: 20130423, end: 20130530
  11. PAXIL [Suspect]
     Indication: DEPRESSION
     Route: 048
     Dates: start: 20100924, end: 20121120
  12. LAMICTAL [Suspect]
     Indication: MOOD SWINGS
     Route: 048
     Dates: start: 20121226, end: 20130108
  13. LAMICTAL [Suspect]
     Indication: MOOD SWINGS
     Route: 048
     Dates: start: 20130109, end: 20130129
  14. LAMICTAL [Suspect]
     Indication: MOOD SWINGS
     Route: 048
     Dates: start: 20130130, end: 20130212
  15. LAMICTAL [Suspect]
     Indication: MOOD SWINGS
     Route: 048
     Dates: start: 20130213, end: 20130312
  16. LAMICTAL [Suspect]
     Indication: MOOD SWINGS
     Route: 048
     Dates: start: 20130313, end: 20130409
  17. MYSLEE [Concomitant]
     Indication: INSOMNIA
     Route: 048
     Dates: start: 20101018, end: 20121120
  18. MYSLEE [Concomitant]
     Indication: INSOMNIA
     Route: 048
     Dates: start: 20121121, end: 20130312
  19. MYSLEE [Concomitant]
     Indication: INSOMNIA
     Route: 048
     Dates: start: 20130313, end: 20130530
  20. ROHYPNOL [Concomitant]
     Indication: INSOMNIA
     Route: 048
     Dates: start: 20101207, end: 20130212
  21. ROHYPNOL [Concomitant]
     Indication: INSOMNIA
     Dosage: 1MG PER DAY
     Route: 048
     Dates: start: 20130213, end: 20130530

REACTIONS (4)
  - Premature labour [Unknown]
  - Exposure during pregnancy [Unknown]
  - Live birth [Unknown]
  - Caesarean section [Unknown]
